FAERS Safety Report 8772477 (Version 1)
Quarter: 2012Q4

REPORT INFORMATION
  Report Type: 
  Country: FR (occurrence: FR)
  Receive Date: 20120905
  Receipt Date: 20120905
  Transmission Date: 20130627
  Serious: Yes (Hospitalization)
  Sender: FDA-Public Use
  Company Number: FR-B.I. PHARMACEUTICALS,INC./RIDGEFIELD-2012-FF-01132FF

PATIENT
  Age: 85 None
  Sex: Male
  Weight: 66 kg

DRUGS (4)
  1. PRADAXA [Suspect]
     Indication: ATRIAL FIBRILLATION
     Dosage: 220 mg
     Route: 048
     Dates: start: 201206, end: 201206
  2. AMIODARONE [Concomitant]
     Route: 048
  3. BISOPROLOL [Concomitant]
     Route: 048
  4. INNOHEP [Concomitant]
     Route: 048

REACTIONS (2)
  - Lower gastrointestinal haemorrhage [Recovered/Resolved]
  - Diverticulum [Unknown]
